FAERS Safety Report 23332787 (Version 1)
Quarter: 2023Q4

REPORT INFORMATION
  Report Type: Spontaneous
  Country: JP (occurrence: JP)
  Receive Date: 20231222
  Receipt Date: 20231222
  Transmission Date: 20240110
  Serious: Yes (Life-Threatening, Other)
  Sender: FDA-Public Use
  Company Number: JP-BRISTOL-MYERS SQUIBB COMPANY-2023-184370

PATIENT
  Age: 71 Year
  Sex: Female

DRUGS (1)
  1. ELIQUIS [Suspect]
     Active Substance: APIXABAN
     Indication: Deep vein thrombosis
     Route: 048

REACTIONS (4)
  - Embolism arterial [Unknown]
  - Parietal lobe stroke [Unknown]
  - Acute myocardial infarction [Unknown]
  - Endocarditis noninfective [Unknown]
